FAERS Safety Report 17866052 (Version 7)
Quarter: 2020Q3

REPORT INFORMATION
  Report Type: Report from Study
  Country: US (occurrence: US)
  Receive Date: 20200605
  Receipt Date: 20200923
  Transmission Date: 20201103
  Serious: Yes (Hospitalization, Other)
  Sender: FDA-Public Use
  Company Number: NVSC2020US155849

PATIENT
  Sex: Male

DRUGS (2)
  1. COSENTYX [Suspect]
     Active Substance: SECUKINUMAB
     Indication: PSORIATIC ARTHROPATHY
     Dosage: UNK UNK, QW (ONCE WEEKLY FOR 5 WEEKS (LOADING))
     Route: 058
     Dates: start: 20190924
  2. COSENTYX [Suspect]
     Active Substance: SECUKINUMAB
     Dosage: UNK UNK, Q4W (ONCE EVERY 4 WEEKS (MAINTENANCE))
     Route: 058

REACTIONS (5)
  - Atrial fibrillation [Recovered/Resolved]
  - Arthralgia [Unknown]
  - Arthropathy [Unknown]
  - Sensitivity to weather change [Unknown]
  - Pain in extremity [Unknown]
